FAERS Safety Report 7402965-2 (Version None)
Quarter: 2011Q2

REPORT INFORMATION
  Report Type: 
  Country: None (occurrence: None)
  Receive Date: 20110408
  Receipt Date: 20110330
  Transmission Date: 20111010
  Serious: Yes (Hospitalization)
  Sender: FDA-Public Use
  Company Number: US-ASTRAZENECA-2011SE04185

PATIENT
  Age: 53 Year
  Sex: Male

DRUGS (5)
  1. SYMBICORT [Suspect]
     Indication: CHRONIC OBSTRUCTIVE PULMONARY DISEASE
     Dosage: 160/4.5 MCG UNKNOWN
     Route: 055
  2. SYMBICORT [Suspect]
     Dosage: 160/4.5 MCG TWO PUFFS BID
     Route: 055
  3. SYMBICORT [Suspect]
     Indication: EMPHYSEMA
     Dosage: 160/4.5 MCG UNKNOWN
     Route: 055
  4. SYMBICORT [Suspect]
     Dosage: 160/4.5 MCG TWO PUFFS BID
     Route: 055
  5. VENTILAIRE [Concomitant]

REACTIONS (3)
  - DRUG DOSE OMISSION [None]
  - DYSPNOEA [None]
  - PNEUMONIA [None]
